FAERS Safety Report 7513257-5 (Version None)
Quarter: 2011Q2

REPORT INFORMATION
  Report Type: 
  Country: None (occurrence: None)
  Receive Date: 20110531
  Receipt Date: 20110121
  Transmission Date: 20111010
  Serious: Yes (Hospitalization, Other)
  Sender: FDA-Public Use
  Company Number: US-BAYER-201018200NA

PATIENT
  Age: 48 Year
  Sex: Female
  Weight: 68.027 kg

DRUGS (5)
  1. CALMOSEPTINE [Concomitant]
     Indication: FUNGAL INFECTION
     Dosage: UNK UNK, PRN
  2. YASMIN [Suspect]
     Indication: MENORRHAGIA
  3. YAZ [Suspect]
     Indication: CONTRACEPTION
     Route: 048
     Dates: start: 20070101, end: 20070311
  4. YAZ [Suspect]
     Indication: MENORRHAGIA
  5. YASMIN [Suspect]
     Indication: CONTRACEPTION

REACTIONS (5)
  - CHEST PAIN [None]
  - PULMONARY THROMBOSIS [None]
  - THROMBOSIS [None]
  - PULMONARY EMBOLISM [None]
  - DEEP VEIN THROMBOSIS [None]
